FAERS Safety Report 25547336 (Version 2)
Quarter: 2025Q3

REPORT INFORMATION
  Report Type: Spontaneous
  Country: HN (occurrence: HN)
  Receive Date: 20250714
  Receipt Date: 20250715
  Transmission Date: 20251021
  Serious: Yes (Death, Hospitalization, Other)
  Sender: NOVARTIS
  Company Number: HN-002147023-NVSC2025HN071651

PATIENT
  Sex: Female

DRUGS (1)
  1. GLIVEC [Suspect]
     Active Substance: IMATINIB MESYLATE
     Indication: Chronic myeloid leukaemia
     Route: 065

REACTIONS (10)
  - Plasma cell myeloma [Fatal]
  - Second primary malignancy [Fatal]
  - Spinal fracture [Unknown]
  - Renal failure [Unknown]
  - Malaise [Unknown]
  - Bone pain [Unknown]
  - Nausea [Unknown]
  - Anaemia [Unknown]
  - Fatigue [Unknown]
  - Decreased appetite [Unknown]
